FAERS Safety Report 7761773-3 (Version None)
Quarter: 2011Q3

REPORT INFORMATION
  Report Type: 
  Country: None (occurrence: None)
  Receive Date: 20110920
  Receipt Date: 20110913
  Transmission Date: 20111222
  Serious: Yes (Life-Threatening)
  Sender: FDA-Public Use
  Company Number: PHHY2011DE81508

PATIENT
  Age: 10 Year
  Sex: Female
  Weight: 28 kg

DRUGS (2)
  1. BUSULFAN [Suspect]
     Dosage: 4 NG, UNK
     Route: 042
     Dates: start: 20101116, end: 20101119
  2. TASIGNA [Suspect]
     Indication: CHRONIC MYELOID LEUKAEMIA
     Dosage: 600 MG, QD
     Route: 048
     Dates: start: 20110315, end: 20110627

REACTIONS (2)
  - METAPNEUMOVIRUS INFECTION [None]
  - PNEUMONITIS [None]
